FAERS Safety Report 4859867-5 (Version None)
Quarter: 2005Q4

REPORT INFORMATION
  Report Type: 
  Country: None (occurrence: None)
  Receive Date: 20051215
  Receipt Date: 20051130
  Transmission Date: 20060501
  Serious: Yes (Hospitalization)
  Sender: FDA-Public Use
  Company Number: 2005-0008749

PATIENT
  Age: 34 Year
  Sex: Male
  Weight: 94 kg

DRUGS (3)
  1. TRUVADA [Suspect]
     Indication: HIV INFECTION
     Dosage: 1 DOSAGE FORMS, 1 IN 1 D, ORAL
     Route: 048
     Dates: start: 20050201, end: 20050705
  2. NORVIR [Concomitant]
  3. TELZIR (FOSAMPRENAVIR) [Concomitant]

REACTIONS (11)
  - ABDOMINAL PAIN [None]
  - ADRENAL CORTICAL INSUFFICIENCY [None]
  - APLASTIC ANAEMIA [None]
  - BARRETT'S OESOPHAGUS [None]
  - BONE MARROW FAILURE [None]
  - BONE MARROW TOXICITY [None]
  - DIARRHOEA [None]
  - FEBRILE NEUTROPENIA [None]
  - HERPES SIMPLEX [None]
  - HERPES VIRUS INFECTION [None]
  - METAPLASIA [None]
